FAERS Safety Report 17110459 (Version 2)
Quarter: 2019Q4

REPORT INFORMATION
  Report Type: Spontaneous
  Country: DE (occurrence: DE)
  Receive Date: 20191204
  Receipt Date: 20191219
  Transmission Date: 20200122
  Serious: Yes (Hospitalization)
  Sender: FDA-Public Use
  Company Number: DE-TEVA-2019-DE-1146946

PATIENT
  Age: 47 Year

DRUGS (5)
  1. OXALIPLATIN. [Concomitant]
     Active Substance: OXALIPLATIN
     Indication: DUCTAL ADENOCARCINOMA OF PANCREAS
     Dosage: FOLFIRINOX REGIMEN.
     Route: 065
     Dates: start: 201902, end: 20190716
  2. FLUOROURACIL. [Suspect]
     Active Substance: FLUOROURACIL
     Indication: DUCTAL ADENOCARCINOMA OF PANCREAS
     Dosage: FOLFIRINOX REGIMEN
     Route: 065
     Dates: start: 201902, end: 20190716
  3. IRINOTECAN [Suspect]
     Active Substance: IRINOTECAN
     Indication: DUCTAL ADENOCARCINOMA OF PANCREAS
     Dosage: FOLFIRINOX REGIMEN.
     Route: 065
     Dates: start: 201902, end: 20190716
  4. LIPEGFILGRASTIM [Suspect]
     Active Substance: LIPEGFILGRASTIM
     Indication: COLONY STIMULATING FACTOR THERAPY
     Route: 065
     Dates: start: 201902
  5. FOLINIC ACID [Concomitant]
     Active Substance: LEUCOVORIN
     Indication: DUCTAL ADENOCARCINOMA OF PANCREAS
     Dosage: FOLFIRINOX REGIMEN
     Route: 065
     Dates: start: 201902, end: 20190716

REACTIONS (5)
  - Acute coronary syndrome [Recovered/Resolved]
  - Coronary artery occlusion [Recovered/Resolved]
  - Leukocytosis [Recovered/Resolved]
  - Hyperviscosity syndrome [Recovered/Resolved]
  - Myocardial infarction [Recovered/Resolved]
